FAERS Safety Report 6764576-1 (Version None)
Quarter: 2010Q2

REPORT INFORMATION
  Report Type: 
  Country: None (occurrence: None)
  Receive Date: 20100610
  Receipt Date: 20100107
  Transmission Date: 20101027
  Serious: No
  Sender: FDA-Public Use
  Company Number: US-TYCO HEALTHCARE/MALLINCKRODT-T201000075

PATIENT
  Age: 53 Year
  Sex: Male

DRUGS (1)
  1. OCTREOSCAN [Suspect]
     Indication: SOMATOSTATIN RECEPTOR SCAN
     Dosage: 6.6 MCI, SINGLE
     Dates: start: 20100106, end: 20100106

REACTIONS (1)
  - DRUG INEFFECTIVE [None]
